FAERS Safety Report 17794929 (Version 1)
Quarter: 2020Q2

REPORT INFORMATION
  Report Type: Spontaneous
  Country: US (occurrence: US)
  Receive Date: 20200516
  Receipt Date: 20200516
  Transmission Date: 20200714
  Serious: Yes (Other)
  Sender: FDA-Public Use
  Company Number: US-SUN PHARMACEUTICAL INDUSTRIES LTD-2020R1-246207

PATIENT
  Sex: Female

DRUGS (1)
  1. DEXTROAMPHET SACCHARAT, AMPHET ASPARTATE, DEXTROAMPHET SULFATE AND AMPHET SULFAT [Suspect]
     Active Substance: AMPHETAMINE ASPARTATE\AMPHETAMINE SULFATE\DEXTROAMPHETAMINE SACCHARATE\DEXTROAMPHETAMINE SULFATE
     Dosage: UNK
     Route: 065

REACTIONS (14)
  - Sensory disturbance [Unknown]
  - Polymenorrhoea [Unknown]
  - Skin discolouration [Unknown]
  - Product substitution error [Unknown]
  - Paranoia [Unknown]
  - Condition aggravated [Unknown]
  - Feeling abnormal [Unknown]
  - Hormone level abnormal [Unknown]
  - Mood altered [Unknown]
  - Vision blurred [Unknown]
  - Heart rate irregular [Unknown]
  - Mental disorder [Unknown]
  - Sensory loss [Unknown]
  - Cardiovascular disorder [Unknown]
